FAERS Safety Report 17135843 (Version 2)
Quarter: 2020Q1

REPORT INFORMATION
  Report Type: Spontaneous
  Country: US (occurrence: US)
  Receive Date: 20191210
  Receipt Date: 20200102
  Transmission Date: 20200409
  Serious: Yes (Other)
  Sender: FDA-Public Use
  Company Number: US-BAYER-2019-220100

PATIENT
  Age: 69 Year
  Sex: Female

DRUGS (2)
  1. LOTRIMIN [Suspect]
     Active Substance: CLOTRIMAZOLE
     Indication: SPOROTRICHOSIS
  2. LOTRIMIN [Suspect]
     Active Substance: CLOTRIMAZOLE
     Indication: THERAPEUTIC SKIN CARE TOPICAL
     Dosage: UNK
     Route: 061
     Dates: start: 2007

REACTIONS (9)
  - Tinea infection [None]
  - Wrong technique in product usage process [None]
  - Dyspnoea [Unknown]
  - Papule [None]
  - Discomfort [None]
  - Cataract [None]
  - Skin fissures [None]
  - Drug effective for unapproved indication [Unknown]
  - Suffocation feeling [Unknown]
